FAERS Safety Report 6367372-2 (Version None)
Quarter: 2009Q3

REPORT INFORMATION
  Report Type: 
  Country: None (occurrence: None)
  Receive Date: 20090921
  Receipt Date: 20090915
  Transmission Date: 20100115
  Serious: Yes (Other)
  Sender: FDA-Public Use
  Company Number: A0710553A

PATIENT
  Age: 84 Year
  Sex: Female

DRUGS (8)
  1. ADVAIR HFA [Suspect]
     Indication: CHRONIC OBSTRUCTIVE PULMONARY DISEASE
     Dosage: 1PUFF TWICE PER DAY
     Route: 055
     Dates: start: 20071001, end: 20080216
  2. ADVAIR HFA [Suspect]
     Route: 055
     Dates: start: 20080201
  3. SPIRIVA [Concomitant]
  4. CRESTOR [Concomitant]
  5. DIURETIC [Concomitant]
  6. NEXIUM [Concomitant]
  7. THYROID MEDICATION [Concomitant]
  8. CALCIUM [Concomitant]

REACTIONS (11)
  - CANDIDIASIS [None]
  - COUGH [None]
  - DYSPHONIA [None]
  - HYPOTHYROIDISM [None]
  - ILL-DEFINED DISORDER [None]
  - LARYNGITIS [None]
  - MACULAR DEGENERATION [None]
  - OROPHARYNGITIS FUNGAL [None]
  - PAIN IN EXTREMITY [None]
  - VISUAL IMPAIRMENT [None]
  - WEIGHT INCREASED [None]
